FAERS Safety Report 12326750 (Version 3)
Quarter: 2016Q2

REPORT INFORMATION
  Report Type: Report from Study
  Country: IL (occurrence: IL)
  Receive Date: 20160503
  Receipt Date: 20160510
  Transmission Date: 20160815
  Serious: Yes (Hospitalization)
  Sender: FDA-Public Use
  Company Number: IL-IPSEN BIOPHARMACEUTICALS, INC.-2016-03187

PATIENT
  Age: 68 Year
  Sex: Male
  Weight: 90 kg

DRUGS (11)
  1. LOPRESSOR DIVITASS [Concomitant]
     Route: 048
  2. TRITACE [Concomitant]
     Active Substance: RAMIPRIL
     Route: 048
  3. NORVASC [Concomitant]
     Active Substance: AMLODIPINE BESYLATE
     Route: 048
  4. CPAP [Concomitant]
     Active Substance: DEVICE
  5. SOMATULINE AUTOGEL [Suspect]
     Active Substance: LANREOTIDE ACETATE
     Indication: ACROMEGALY
     Dosage: 90 MG
     Route: 065
     Dates: start: 20031124
  6. VABEN [Concomitant]
     Active Substance: OXAZEPAM
     Route: 048
  7. SIMOVIL [Concomitant]
     Route: 048
  8. AMARYL [Concomitant]
     Active Substance: GLIMEPIRIDE
     Route: 048
  9. XATRAL [Concomitant]
     Active Substance: ALFUZOSIN
     Route: 048
  10. DISOTHIAZIDE [Concomitant]
     Route: 048
  11. GLUCOPHAGE RETARD [Concomitant]
     Route: 048

REACTIONS (11)
  - Bile duct stone [Recovering/Resolving]
  - Dysuria [Unknown]
  - Liver abscess [Recovered/Resolved]
  - Pulmonary mass [Unknown]
  - Renal cyst [Unknown]
  - Inguinal hernia [Unknown]
  - Adrenal mass [Unknown]
  - Bacteraemia [Unknown]
  - Atelectasis [Unknown]
  - Aortic arteriosclerosis [Unknown]
  - Prostatomegaly [Unknown]

NARRATIVE: CASE EVENT DATE: 2007
